FAERS Safety Report 9154888 (Version 1)
Quarter: 2013Q1

REPORT INFORMATION
  Report Type: Spontaneous
  Country: US (occurrence: None)
  Receive Date: 20130205
  Receipt Date: 20130205
  Transmission Date: 20140127
  Serious: Yes (Other)
  Sender: FDA-Public Use
  Company Number: 2013P1001553

PATIENT
  Sex: Female

DRUGS (2)
  1. INFUMORPH [Suspect]
     Indication: POST LAMINECTOMY SYNDROME
     Dates: end: 20100817
  2. INFUMORPH [Suspect]
     Indication: PAIN
     Dates: end: 20100817

REACTIONS (11)
  - Nausea [None]
  - Tremor [None]
  - Hyperhidrosis [None]
  - Dizziness [None]
  - Muscular weakness [None]
  - Hypoaesthesia [None]
  - Device dislocation [None]
  - Device leakage [None]
  - Implant site cellulitis [None]
  - Eschar [None]
  - Implant site erythema [None]
